FAERS Safety Report 20298578 (Version 2)
Quarter: 2022Q1

REPORT INFORMATION
  Report Type: Spontaneous
  Country: FR (occurrence: FR)
  Receive Date: 20220105
  Receipt Date: 20220202
  Transmission Date: 20220423
  Serious: Yes (Other)
  Sender: FDA-Public Use
  Company Number: None

PATIENT
  Age: 91 Year
  Sex: Male

DRUGS (5)
  1. ROSUVASTATIN CALCIUM [Suspect]
     Active Substance: ROSUVASTATIN CALCIUM
     Indication: Hypercholesterolaemia
     Dosage: 5 MG/DAY
     Route: 048
     Dates: end: 20211118
  2. ACETAMINOPHEN [Suspect]
     Active Substance: ACETAMINOPHEN
     Indication: Pain
     Dosage: 1G EVERY 8H
     Route: 048
     Dates: start: 20211112, end: 20211118
  3. VALPROMIDE [Suspect]
     Active Substance: VALPROMIDE
     Indication: Behaviour disorder
     Dosage: 300MG X2/DAY; STRENGTH: 300 MG; GASTRO-RESISTANT FILM-COATED TABLET
     Route: 048
     Dates: end: 20211118
  4. MIANSERIN HYDROCHLORIDE [Suspect]
     Active Substance: MIANSERIN HYDROCHLORIDE
     Indication: Product used for unknown indication
     Dosage: 10MG / D
     Route: 048
     Dates: end: 20211118
  5. QUETIAPINE [Suspect]
     Active Substance: QUETIAPINE
     Indication: Behaviour disorder
     Dosage: 50MG / D; BRAND NAME: XEROQUEL LP 50 MG,
     Route: 048
     Dates: start: 20211102

REACTIONS (2)
  - Cholestasis [Recovering/Resolving]
  - Hepatic cytolysis [Recovered/Resolved]

NARRATIVE: CASE EVENT DATE: 20211110
